FAERS Safety Report 16736149 (Version 1)
Quarter: 2019Q4

REPORT INFORMATION
  Report Type: Spontaneous
  Country: US (occurrence: US)
  Receive Date: 20190823
  Receipt Date: 20190823
  Transmission Date: 20200122
  Serious: Yes (Death)
  Sender: FDA-Public Use
  Company Number: None

PATIENT
  Age: 81 Year
  Sex: Female
  Weight: 87.6 kg

DRUGS (2)
  1. PROTAMINE SULFATE. [Concomitant]
     Active Substance: PROTAMINE SULFATE
     Dates: start: 20190822, end: 20190822
  2. PROTAMINE SULFATE. [Suspect]
     Active Substance: PROTAMINE SULFATE
     Indication: TRANSCATHETER AORTIC VALVE IMPLANTATION
     Dates: start: 20190822, end: 20190822

REACTIONS (5)
  - Acidosis [None]
  - Post procedural complication [None]
  - Cardiac arrest [None]
  - Blood glucose increased [None]
  - Hypotension [None]

NARRATIVE: CASE EVENT DATE: 20190822
